FAERS Safety Report 4428024-9 (Version None)
Quarter: 2004Q3

REPORT INFORMATION
  Report Type: 
  Country: None (occurrence: None)
  Receive Date: 20040813
  Receipt Date: 20040728
  Transmission Date: 20050211
  Serious: Yes (Hospitalization)
  Sender: FDA-Public Use
  Company Number: A03200402524

PATIENT
  Age: 67 Year
  Sex: Male

DRUGS (3)
  1. ELOXATIN [Suspect]
     Indication: COLON CANCER
     Dosage: 167 MG OTHER - INTRAVENOUS NOS
     Route: 042
     Dates: start: 20040714, end: 20040714
  2. FLUOROURACIL [Concomitant]
  3. LEUCOVORIN [Concomitant]

REACTIONS (5)
  - APNOEA [None]
  - HICCUPS [None]
  - NERVE INJURY [None]
  - SYNCOPE [None]
  - THERAPY NON-RESPONDER [None]
